FAERS Safety Report 21133567 (Version 1)
Quarter: 2022Q3

REPORT INFORMATION
  Report Type: Spontaneous
  Country: IQ (occurrence: IQ)
  Receive Date: 20220726
  Receipt Date: 20220726
  Transmission Date: 20221027
  Serious: Yes (Hospitalization, Other)
  Sender: FDA-Public Use
  Company Number: IQ-PFIZER INC-PV202200029515

PATIENT
  Age: 60 Year
  Sex: Female

DRUGS (1)
  1. BOSUTINIB [Suspect]
     Active Substance: BOSUTINIB
     Indication: Chronic myeloid leukaemia
     Dosage: 300 MG

REACTIONS (4)
  - Atrial fibrillation [Unknown]
  - Diarrhoea [Unknown]
  - Hypotension [Unknown]
  - Hepatic enzyme increased [Unknown]
